FAERS Safety Report 5240547-1 (Version None)
Quarter: 2007Q1

REPORT INFORMATION
  Report Type: 
  Country: None (occurrence: None)
  Receive Date: 20070219
  Receipt Date: 20070205
  Transmission Date: 20070707
  Serious: Yes (Other)
  Sender: FDA-Public Use
  Company Number: JP-ROCHE-481447

PATIENT
  Age: 67 Year
  Sex: Male

DRUGS (3)
  1. INTERFERON ALFA [Suspect]
     Indication: RENAL CANCER METASTATIC
     Dosage: ROUTE REPORTED AS INJECTION.
     Route: 050
  2. INTERFERON ALFA [Suspect]
     Route: 050
  3. INTERFERON ALFA [Suspect]
     Dosage: 5 DAYS PER WEEK. 25 MILLION UNITS PER WEEK. FORM REPORTED AS INFUSION.
     Route: 030

REACTIONS (2)
  - MENTAL DISORDER DUE TO A GENERAL MEDICAL CONDITION [None]
  - NEUROTOXICITY [None]
